FAERS Safety Report 18065052 (Version 2)
Quarter: 2020Q3

REPORT INFORMATION
  Report Type: Spontaneous
  Country: US (occurrence: US)
  Receive Date: 20200724
  Receipt Date: 20200820
  Transmission Date: 20201103
  Serious: Yes (Hospitalization)
  Sender: FDA-Public Use
  Company Number: US-AMGEN-USASP2020117105

PATIENT
  Age: 60 Year
  Sex: Female

DRUGS (1)
  1. ARANESP [Suspect]
     Active Substance: DARBEPOETIN ALFA
     Indication: ANAEMIA OF MALIGNANT DISEASE
     Dosage: 500 MICROGRAM, Q3WK
     Route: 058
     Dates: start: 20180724

REACTIONS (2)
  - Asthenia [Unknown]
  - Hypocalcaemia [Unknown]
